FAERS Safety Report 9012037 (Version 1)
Quarter: 2013Q1

REPORT INFORMATION
  Report Type: Spontaneous
  Country: US (occurrence: US)
  Receive Date: 20130114
  Receipt Date: 20130114
  Transmission Date: 20140127
  Serious: Yes (Hospitalization)
  Sender: FDA-Public Use
  Company Number: US-BAYER-2013-002327

PATIENT
  Age: 36 Year
  Sex: Female

DRUGS (11)
  1. YAZ [Suspect]
  2. RELAFEN [Concomitant]
  3. LEXAPRO [Concomitant]
     Dosage: 20 MG, DAILY
  4. AVANDAMET [Concomitant]
     Dosage: 500/4 MG ONE TABLET DAILY
  5. XANAX [Concomitant]
     Dosage: 0.5 MG, QHS (AT BEDTIME) PRN
  6. CITALOPRAM [Concomitant]
     Dosage: 20 MG, UNK
  7. AVANDIA [Concomitant]
     Dosage: 4 MG, UNK
  8. PRILOSEC [Concomitant]
     Dosage: 20 MG, UNK
  9. PERCOCET [Concomitant]
     Dosage: 5/325 TWO TABLETS EVERY 4 HOURS AS NEEDED
  10. PHENERGAN [Concomitant]
     Dosage: 25 MG, PRN
  11. GLUCOTROL XL [Concomitant]

REACTIONS (2)
  - Pulmonary embolism [Recovered/Resolved]
  - Deep vein thrombosis [Recovered/Resolved]
